FAERS Safety Report 11130058 (Version 1)
Quarter: 2015Q2

REPORT INFORMATION
  Report Type: Spontaneous
  Country: ES (occurrence: ES)
  Receive Date: 20150521
  Receipt Date: 20150521
  Transmission Date: 20150821
  Serious: Yes (Hospitalization)
  Sender: FDA-Public Use
  Company Number: ES-MYLANLABS-2015M1016913

PATIENT

DRUGS (3)
  1. ARIPIPRAZOLE. [Concomitant]
     Active Substance: ARIPIPRAZOLE
     Dosage: 5MG/DAY
     Route: 065
  2. LITHIUM. [Suspect]
     Active Substance: LITHIUM
     Dosage: 600 MG/D
     Route: 065
  3. LEVODOPA [Interacting]
     Active Substance: LEVODOPA
     Dosage: 250 MG/D
     Route: 065

REACTIONS (3)
  - Drug interaction [Recovered/Resolved]
  - Creutzfeldt-Jakob disease [Recovering/Resolving]
  - Toxicity to various agents [Recovering/Resolving]
